FAERS Safety Report 15318089 (Version 1)
Quarter: 2018Q3

REPORT INFORMATION
  Report Type: Report from Study
  Country: US (occurrence: US)
  Receive Date: 20180825
  Receipt Date: 20180825
  Transmission Date: 20181010
  Serious: No
  Sender: FDA-Public Use
  Company Number: PHEH2018US035216

PATIENT
  Sex: Female
  Weight: 70.75 kg

DRUGS (4)
  1. COSENTYX [Suspect]
     Active Substance: SECUKINUMAB
     Indication: PSORIATIC ARTHROPATHY
     Dosage: 300 MG, QMO (VIAL)
     Route: 058
     Dates: start: 20170906, end: 20180815
  2. STELARA [Suspect]
     Active Substance: USTEKINUMAB
     Dosage: 45 MG, Q12 WEEKS
     Route: 065
     Dates: start: 20180815
  3. IMURAN [Suspect]
     Active Substance: AZATHIOPRINE
     Dosage: 100 MG, QD
     Route: 065
     Dates: start: 201612, end: 20180218
  4. ARAVA [Suspect]
     Active Substance: LEFLUNOMIDE
     Dosage: 20 MG, QD
     Route: 065
     Dates: start: 20180228

REACTIONS (3)
  - Upper respiratory tract infection [Unknown]
  - Therapeutic response decreased [Unknown]
  - Osteoporosis [Unknown]

NARRATIVE: CASE EVENT DATE: 201801
